FAERS Safety Report 18082678 (Version 1)
Quarter: 2020Q3

REPORT INFORMATION
  Report Type: Spontaneous
  Country: BG (occurrence: BG)
  Receive Date: 20200729
  Receipt Date: 20200729
  Transmission Date: 20201103
  Serious: Yes (Hospitalization)
  Sender: FDA-Public Use
  Company Number: BG-ROCHE-2648809

PATIENT
  Age: 73 Year
  Sex: Male
  Weight: 65 kg

DRUGS (11)
  1. PARACETAMOL [Concomitant]
     Active Substance: ACETAMINOPHEN
     Indication: PREMEDICATION
     Route: 048
     Dates: start: 20200721, end: 20200721
  2. ALLERGOSAN [Concomitant]
     Route: 042
     Dates: start: 20200701, end: 20200701
  3. FURANTHRIL [Concomitant]
     Active Substance: FUROSEMIDE
     Route: 042
     Dates: start: 20200721, end: 20200721
  4. URBASON [Concomitant]
     Active Substance: METHYLPREDNISOLONE
     Indication: PREMEDICATION
     Route: 042
     Dates: start: 20200721, end: 20200721
  5. MILURIT [Concomitant]
     Active Substance: ALLOPURINOL
     Indication: B-CELL LYMPHOMA
  6. URBASON [Concomitant]
     Active Substance: METHYLPREDNISOLONE
     Route: 042
     Dates: start: 20200721, end: 20200721
  7. FOKUSIN [Concomitant]
     Active Substance: TAMSULOSIN
     Indication: BENIGN PROSTATIC HYPERPLASIA
  8. MABTHERA [Suspect]
     Active Substance: RITUXIMAB
     Indication: B-CELL LYMPHOMA
     Dosage: 375 MG/M2 OR 675 MG PER INFUSION
     Route: 041
     Dates: start: 20200721, end: 20200721
  9. TAMSULON [Concomitant]
     Indication: BENIGN PROSTATIC HYPERPLASIA
  10. ISOKET [Concomitant]
     Active Substance: ISOSORBIDE DINITRATE
     Route: 060
     Dates: start: 20200721, end: 20200721
  11. ALLERGOSAN [Concomitant]
     Indication: PREMEDICATION
     Route: 048
     Dates: start: 20200721, end: 20200721

REACTIONS (3)
  - Pain [Recovering/Resolving]
  - Contusion [Recovering/Resolving]
  - Dyspnoea [Recovering/Resolving]

NARRATIVE: CASE EVENT DATE: 20200721
